FAERS Safety Report 5454012-X (Version None)
Quarter: 2007Q3

REPORT INFORMATION
  Report Type: 
  Country: None (occurrence: None)
  Receive Date: 20070917
  Receipt Date: 20070228
  Transmission Date: 20080115
  Serious: Yes (Other)
  Sender: FDA-Public Use
  Company Number: US-ASTRAZENECA-2006UW07065

PATIENT
  Age: 55 Year
  Sex: Male
  Weight: 139.1 kg

DRUGS (1)
  1. SEROQUEL [Suspect]
     Indication: INSOMNIA
     Route: 048
     Dates: start: 20030801, end: 20050101

REACTIONS (2)
  - DIABETES MELLITUS [None]
  - PANCREATITIS [None]
